FAERS Safety Report 6057609-1 (Version None)
Quarter: 2009Q1

REPORT INFORMATION
  Report Type: 
  Country: None (occurrence: None)
  Receive Date: 20090129
  Receipt Date: 20090120
  Transmission Date: 20090719
  Serious: Yes (Other)
  Sender: FDA-Public Use
  Company Number: BR-PFIZER INC-2008100533

PATIENT

DRUGS (2)
  1. CHAMPIX [Suspect]
     Indication: SMOKING CESSATION THERAPY
     Route: 048
     Dates: start: 20080101, end: 20080101
  2. FRONTAL [Concomitant]

REACTIONS (3)
  - DIARRHOEA [None]
  - LUNG OPERATION [None]
  - SKIN EXFOLIATION [None]
